FAERS Safety Report 17352108 (Version 1)
Quarter: 2020Q1

REPORT INFORMATION
  Report Type: Spontaneous
  Country: GB (occurrence: GB)
  Receive Date: 20200130
  Receipt Date: 20200130
  Transmission Date: 20200409
  Serious: Yes (Hospitalization)
  Sender: FDA-Public Use
  Company Number: GB-MYLANLABS-2020M1010497

PATIENT
  Age: 8 Year
  Sex: Male
  Weight: 21 kg

DRUGS (8)
  1. CLONIDINE. [Concomitant]
     Active Substance: CLONIDINE
     Dosage: UNK
  2. PARACETAMOL [Concomitant]
     Active Substance: ACETAMINOPHEN
     Dosage: UNK
  3. MELATONIN [Concomitant]
     Active Substance: MELATONIN
     Dosage: UNK
  4. BACLOFEN. [Concomitant]
     Active Substance: BACLOFEN
     Dosage: UNK
  5. DIAZEPAM. [Concomitant]
     Active Substance: DIAZEPAM
     Dosage: UNK
  6. OMEPRAZOLE. [Concomitant]
     Active Substance: OMEPRAZOLE
     Dosage: UNK
  7. IBUPROFEN. [Suspect]
     Active Substance: IBUPROFEN
     Indication: TOOTHACHE
     Dosage: 600 MILLIGRAM, QD
     Route: 048
     Dates: end: 20191003
  8. HYOSCINE [Concomitant]
     Active Substance: SCOPOLAMINE

REACTIONS (4)
  - Adenovirus infection [Unknown]
  - Vomiting [Unknown]
  - Diarrhoea haemorrhagic [Unknown]
  - Gastrointestinal haemorrhage [Recovered/Resolved]

NARRATIVE: CASE EVENT DATE: 20191001
